FAERS Safety Report 16568675 (Version 2)
Quarter: 2019Q3

REPORT INFORMATION
  Report Type: Spontaneous
  Country: JP (occurrence: JP)
  Receive Date: 20190713
  Receipt Date: 20190715
  Transmission Date: 20191004
  Serious: Yes (Hospitalization, Other)
  Sender: FDA-Public Use
  Company Number: JP-009507513-1907JPN007575

PATIENT
  Sex: Female

DRUGS (2)
  1. CITRIC ACID (+) DEXTROSE (+) SODIUM CITRATE [Concomitant]
  2. TEDIZOLID PHOSPHATE. [Suspect]
     Active Substance: TEDIZOLID PHOSPHATE
     Indication: SKIN INFECTION
     Dosage: 200 MG, QD
     Route: 048
     Dates: start: 201905, end: 201906

REACTIONS (2)
  - Haemoglobin decreased [Recovered/Resolved]
  - Pancytopenia [Recovered/Resolved]

NARRATIVE: CASE EVENT DATE: 201906
